FAERS Safety Report 8373030-5 (Version None)
Quarter: 2012Q2

REPORT INFORMATION
  Report Type: 
  Country: None (occurrence: None)
  Receive Date: 20120521
  Receipt Date: 20120510
  Transmission Date: 20120825
  Serious: Yes (Life-Threatening, Hospitalization)
  Sender: FDA-Public Use
  Company Number: JP-BRISTOL-MYERS SQUIBB COMPANY-15861511

PATIENT
  Age: 51 Year
  Sex: Female
  Weight: 54 kg

DRUGS (1)
  1. KENACORT [Suspect]
     Indication: SINUSITIS
     Dosage: 1DF= 40 MG/1 ML
     Route: 030
     Dates: start: 20111124, end: 20111124

REACTIONS (2)
  - RETINAL ARTERY OCCLUSION [None]
  - ANAPHYLACTOID REACTION [None]
